FAERS Safety Report 15331337 (Version 2)
Quarter: 2019Q2

REPORT INFORMATION
  Report Type: Spontaneous
  Country: CA (occurrence: CA)
  Receive Date: 20180829
  Receipt Date: 20190624
  Transmission Date: 20190711
  Serious: Yes (Other)
  Sender: FDA-Public Use
  Company Number: CA-TEVA-2018-CA-947307

PATIENT
  Age: 25 Year
  Sex: Male
  Weight: 78 kg

DRUGS (27)
  1. SULFAMETHOXAZOLE AND TRIMETHOPRIM [Suspect]
     Active Substance: SULFAMETHOXAZOLE\TRIMETHOPRIM
     Indication: URINARY TRACT INFECTION
     Route: 048
  2. EPIVAL [Concomitant]
     Active Substance: DIVALPROEX SODIUM
  3. SYNTHROID USP [Concomitant]
  4. TECTA [Concomitant]
     Active Substance: PANTOPRAZOLE MAGNESIUM
  5. CETAPHIL DAILY FACIAL MOISTURIZER SPF 15 [Concomitant]
  6. OMEGA 3-6-9 [Concomitant]
     Active Substance: FISH OIL
  7. OTRIVIN [Concomitant]
     Active Substance: XYLOMETAZOLINE
  8. VITAMIN D [Concomitant]
     Active Substance: VITAMIN D NOS
  9. ZYLOPRIM [Concomitant]
     Active Substance: ALLOPURINOL
  10. CANESTEN [Suspect]
     Active Substance: CLOTRIMAZOLE
     Route: 061
  11. SEROQUEL [Concomitant]
     Active Substance: QUETIAPINE FUMARATE
  12. BENZACLIN [Concomitant]
     Active Substance: BENZOYL PEROXIDE\CLINDAMYCIN PHOSPHATE
     Route: 061
  13. DICLOFENAC [Concomitant]
     Active Substance: DICLOFENAC
  14. TOVIAZ [Concomitant]
     Active Substance: FESOTERODINE FUMARATE
  15. CETAPHIL DERMACONTROL OIL CONTROL MOISTURIZER [Concomitant]
  16. CIPRALEX [Concomitant]
     Active Substance: ESCITALOPRAM OXALATE
  17. FLOVENT [Concomitant]
     Active Substance: FLUTICASONE PROPIONATE
  18. GENTEAL MILD [Concomitant]
     Active Substance: HYPROMELLOSE 2910 (4000 MPA.S)
  19. NASACORT AQ [Concomitant]
     Active Substance: TRIAMCINOLONE ACETONIDE
  20. TYLENOL [Concomitant]
     Active Substance: ACETAMINOPHEN
  21. TYLENOL EXTRA STRENGTH [Concomitant]
     Active Substance: ACETAMINOPHEN
  22. AZITHROMYCIN ANHYDROUS. [Concomitant]
     Active Substance: AZITHROMYCIN ANHYDROUS
  23. ZINC GLUCONATE [Concomitant]
     Active Substance: ZINC GLUCONATE
  24. CALCIUM [Concomitant]
     Active Substance: CALCIUM
  25. TEARS PLUS 1.4% [Concomitant]
     Route: 047
  26. ACZONE [Concomitant]
     Active Substance: DAPSONE
  27. DOMPERIDONE [Concomitant]
     Active Substance: DOMPERIDONE

REACTIONS (3)
  - Mental impairment [Recovered/Resolved]
  - General physical health deterioration [Recovered/Resolved]
  - Product substitution issue [Recovered/Resolved]
